FAERS Safety Report 8611673-1 (Version None)
Quarter: 2012Q3

REPORT INFORMATION
  Report Type: 
  Country: None (occurrence: None)
  Receive Date: 20120809
  Receipt Date: 20120725
  Transmission Date: 20120928
  Serious: Yes (Death, Other)
  Sender: FDA-Public Use
  Company Number: 2012MA009150

PATIENT
  Age: 41 Year
  Sex: Female

DRUGS (6)
  1. DIPHENHYDRAMINE HYDROCHLORIDE [Suspect]
     Indication: PRODUCT USED FOR UNKNOWN INDICATION
  2. TRAMADOL HCL [Suspect]
     Indication: PRODUCT USED FOR UNKNOWN INDICATION
  3. ETHANOL [Suspect]
     Indication: PRODUCT USED FOR UNKNOWN INDICATION
  4. KADIAN (MORPHINE SULFATE EXTENDED-RELEASE) CAPUSLES [Suspect]
     Indication: PRODUCT USED FOR UNKNOWN INDICATION
  5. SERTRALINE HYDROCHLORIDE [Suspect]
     Indication: PRODUCT USED FOR UNKNOWN INDICATION
  6. HEROIN [Suspect]
     Indication: PRODUCT USED FOR UNKNOWN INDICATION

REACTIONS (5)
  - TOXICITY TO VARIOUS AGENTS [None]
  - PULMONARY CONGESTION [None]
  - HEPATOSPLENOMEGALY [None]
  - WOUND [None]
  - PULMONARY OEDEMA [None]
